FAERS Safety Report 8068373-9 (Version None)
Quarter: 2012Q1

REPORT INFORMATION
  Report Type: 
  Country: None (occurrence: None)
  Receive Date: 20120124
  Receipt Date: 20111018
  Transmission Date: 20120608
  Serious: No
  Sender: FDA-Public Use
  Company Number: US-AMGEN-USASP2011053817

PATIENT
  Age: 82 Year
  Sex: Female

DRUGS (28)
  1. ALBUTEROL [Concomitant]
     Dosage: UNK
  2. METFORMIN HCL [Concomitant]
  3. NASAL [Concomitant]
     Dosage: UNK
  4. AMLODIPINE [Concomitant]
     Dosage: UNK
  5. AMLODIPINE [Concomitant]
  6. LOSARTAN POTASSIUM [Concomitant]
  7. FISH OIL [Concomitant]
  8. PROLIA [Suspect]
     Indication: OSTEOPOROSIS POSTMENOPAUSAL
     Dosage: 60 MG, Q6MO
     Dates: start: 20111007
  9. OXYBUTYNIN [Concomitant]
  10. VITAMIN D [Concomitant]
     Dosage: UNK
  11. NASAL [Concomitant]
  12. CITRACAL [Concomitant]
     Dosage: UNK
  13. CALCIUM [Concomitant]
     Dosage: UNK
  14. VITAMIN B-12 [Concomitant]
     Dosage: UNK
  15. METFORMIN HCL [Concomitant]
     Dosage: UNK
  16. ASPIRIN [Concomitant]
     Dosage: UNK
  17. DARVOCET [Concomitant]
     Dosage: UNK
  18. LOSARTAN POTASSIUM [Concomitant]
     Dosage: UNK
  19. SIMVASTATIN [Concomitant]
  20. ASCORBIC ACID [Concomitant]
     Dosage: UNK
  21. FUROSEMIDE [Concomitant]
     Dosage: UNK
  22. SIMVASTATIN [Concomitant]
     Dosage: UNK
  23. FISH OIL [Concomitant]
     Dosage: UNK
  24. CITRACAL [Concomitant]
  25. OXYBUTYNIN [Concomitant]
     Dosage: UNK
  26. CALCIUM [Concomitant]
  27. FUROSEMIDE [Concomitant]
  28. VITAMIN B-12 [Concomitant]

REACTIONS (19)
  - RETCHING [None]
  - RESPIRATORY TRACT CONGESTION [None]
  - DYSPNOEA [None]
  - WALKING AID USER [None]
  - FATIGUE [None]
  - DIARRHOEA [None]
  - NAUSEA [None]
  - MYALGIA [None]
  - MUSCLE SPASMS [None]
  - SNEEZING [None]
  - GAIT DISTURBANCE [None]
  - ABASIA [None]
  - ASTHENIA [None]
  - STRESS URINARY INCONTINENCE [None]
  - COUGH [None]
  - APHONIA [None]
  - BACK PAIN [None]
  - PAIN IN EXTREMITY [None]
  - RHINORRHOEA [None]
